FAERS Safety Report 7020940-7 (Version None)
Quarter: 2010Q3

REPORT INFORMATION
  Report Type: 
  Country: None (occurrence: None)
  Receive Date: 20100929
  Receipt Date: 20100927
  Transmission Date: 20110219
  Serious: Yes (Hospitalization)
  Sender: FDA-Public Use
  Company Number: FR-BRISTOL-MYERS SQUIBB COMPANY-15306772

PATIENT
  Age: 84 Year
  Sex: Female

DRUGS (5)
  1. COUMADIN [Suspect]
     Dosage: 2MGX2(WARFARIN).1AUG10 IN THE EVENING
     Dates: end: 20100802
  2. TRIATEC [Concomitant]
  3. FUROSEMIDE [Concomitant]
  4. HEMIGOXINE NATIVELLE [Concomitant]
  5. SERETIDE [Concomitant]

REACTIONS (2)
  - EPISTAXIS [None]
  - PNEUMONIA ASPIRATION [None]
